FAERS Safety Report 14762050 (Version 1)
Quarter: 2018Q2

REPORT INFORMATION
  Report Type: Spontaneous
  Country: IT (occurrence: IT)
  Receive Date: 20180416
  Receipt Date: 20180416
  Transmission Date: 20180711
  Serious: Yes (Death)
  Sender: FDA-Public Use
  Company Number: IT-ROCHE-2104839

PATIENT
  Age: 78 Year
  Sex: Male

DRUGS (1)
  1. AVASTIN [Suspect]
     Active Substance: BEVACIZUMAB
     Indication: MACULOPATHY
     Route: 031
     Dates: start: 20180208, end: 20180208

REACTIONS (1)
  - Intestinal infarction [Fatal]

NARRATIVE: CASE EVENT DATE: 20180222
